FAERS Safety Report 5848859-5 (Version None)
Quarter: 2008Q3

REPORT INFORMATION
  Report Type: 
  Country: None (occurrence: None)
  Receive Date: 20080818
  Receipt Date: 20080806
  Transmission Date: 20090109
  Serious: Yes (Other)
  Sender: FDA-Public Use
  Company Number: GB-PFIZER INC-2008063314

PATIENT
  Age: 41 Year
  Sex: Male

DRUGS (2)
  1. CHANTIX [Suspect]
     Route: 048
  2. PENICILLIN V POTASSIUM [Concomitant]

REACTIONS (1)
  - PSORIASIS [None]
